FAERS Safety Report 5519374-3 (Version None)
Quarter: 2007Q4

REPORT INFORMATION
  Report Type: 
  Country: None (occurrence: None)
  Receive Date: 20071116
  Receipt Date: 20071112
  Transmission Date: 20080405
  Serious: Yes (Other)
  Sender: FDA-Public Use
  Company Number: JP-BRISTOL-MYERS SQUIBB COMPANY-13979638

PATIENT
  Age: 52 Year
  Sex: Male

DRUGS (6)
  1. CYCLOPHOSPHAMIDE [Suspect]
     Indication: BONE MARROW CONDITIONING REGIMEN
  2. METHOTREXATE [Suspect]
     Indication: GRAFT VERSUS HOST DISEASE
  3. PREDNISOLONE [Suspect]
     Dosage: ON MONTH LATER, 0.2 MG/KG DAILY.
  4. TACROLIMUS [Suspect]
     Indication: GRAFT VERSUS HOST DISEASE
  5. MYCOPHENOLATE MOFETIL [Suspect]
  6. RADIATION THERAPY [Concomitant]
     Indication: BONE MARROW CONDITIONING REGIMEN

REACTIONS (1)
  - CEREBRAL TOXOPLASMOSIS [None]
